FAERS Safety Report 4758101-4 (Version None)
Quarter: 2005Q3

REPORT INFORMATION
  Report Type: 
  Country: None (occurrence: None)
  Receive Date: 20050831
  Receipt Date: 20030102
  Transmission Date: 20060218
  Serious: Yes (Hospitalization, Disabling)
  Sender: FDA-Public Use
  Company Number: US-MERCK-0301USA00111

PATIENT
  Age: 45 Year
  Sex: Female
  Weight: 121 kg

DRUGS (18)
  1. VIOXX [Suspect]
     Indication: OSTEOARTHRITIS
     Route: 048
     Dates: start: 20000901, end: 20010222
  2. VIOXX [Suspect]
     Route: 048
     Dates: start: 20010222, end: 20020107
  3. VIOXX [Suspect]
     Route: 048
     Dates: start: 20020107, end: 20040901
  4. VIOXX [Suspect]
     Indication: SYSTEMIC LUPUS ERYTHEMATOSUS
     Route: 048
     Dates: start: 20000901, end: 20010222
  5. VIOXX [Suspect]
     Route: 048
     Dates: start: 20010222, end: 20020107
  6. VIOXX [Suspect]
     Route: 048
     Dates: start: 20020107, end: 20040901
  7. ULTRAM [Concomitant]
     Route: 065
     Dates: start: 19950101
  8. LASIX [Concomitant]
     Route: 065
     Dates: start: 20010101
  9. PRILOSEC [Concomitant]
     Route: 065
  10. CLONIDINE [Concomitant]
     Route: 065
  11. ACETAMINOPHEN AND HYDROCODONE BITARTRATE [Concomitant]
     Route: 065
  12. TIZANIDINE [Concomitant]
     Route: 065
  13. PREMARIN [Concomitant]
     Indication: HORMONE REPLACEMENT THERAPY
     Route: 065
     Dates: start: 19970801, end: 20031001
  14. SYNTEST DS [Concomitant]
     Route: 065
  15. BENAZEPRIL HYDROCHLORIDE [Concomitant]
     Route: 065
  16. VOLTAREN [Concomitant]
     Route: 065
  17. SULAR [Concomitant]
     Indication: HYPERTENSION
     Route: 065
     Dates: start: 20001001, end: 20010601
  18. TYLENOL [Concomitant]
     Route: 065
     Dates: start: 19950101

REACTIONS (26)
  - ARTHROPATHY [None]
  - ATHEROSCLEROSIS [None]
  - BACK PAIN [None]
  - CHEST PAIN [None]
  - DIARRHOEA [None]
  - DRUG EFFECT DECREASED [None]
  - DRUG HYPERSENSITIVITY [None]
  - FIBROMYALGIA [None]
  - FUNGAL INFECTION [None]
  - GASTRIC DISORDER [None]
  - HAEMATURIA [None]
  - HYPERTENSION [None]
  - MALIGNANT HYPERTENSION [None]
  - NEPHROLITHIASIS [None]
  - NERVE INJURY [None]
  - OEDEMA PERIPHERAL [None]
  - OSTEOARTHRITIS [None]
  - RASH GENERALISED [None]
  - RENAL CYST [None]
  - RENAL DISORDER [None]
  - RENAL PAIN [None]
  - SWELLING FACE [None]
  - THROMBOSIS [None]
  - TRANSIENT ISCHAEMIC ATTACK [None]
  - URINARY TRACT INFECTION [None]
  - VAGINAL HAEMORRHAGE [None]
